FAERS Safety Report 6220316-6 (Version None)
Quarter: 2009Q2

REPORT INFORMATION
  Report Type: 
  Country: None (occurrence: None)
  Receive Date: 20090529
  Receipt Date: 20090518
  Transmission Date: 20091009
  Serious: Yes (Other)
  Sender: FDA-Public Use
  Company Number: THYM-1001055

PATIENT
  Age: 23 Year
  Sex: Female

DRUGS (11)
  1. THYMOGLOBULIN [Suspect]
     Indication: HISTIOCYTOSIS HAEMATOPHAGIC
     Dosage: 1.5 MG/KG, ONCE; 1.0MG/KG QD INTRAVENOUS
     Route: 042
  2. PHENYLEPHRINE (PHENYLEPHRINE) [Concomitant]
  3. VASOPRESSIN (VASOPRESSIN) [Concomitant]
  4. PIPERACILLIN [Concomitant]
  5. TAZOBACTAM [Concomitant]
  6. ACYCLOVIR [Concomitant]
  7. VANCOMYCIN [Concomitant]
  8. CLINDAMYCIN HCL [Concomitant]
  9. FLUCONAZOLE [Concomitant]
  10. METHYLPREDNISOLONE [Concomitant]
  11. CYCLOSPORINE [Concomitant]

REACTIONS (4)
  - ANAEMIA HAEMOLYTIC AUTOIMMUNE [None]
  - HYPERBILIRUBINAEMIA [None]
  - PANCREATITIS [None]
  - THROMBOCYTOPENIA [None]
